FAERS Safety Report 9384530 (Version 2)
Quarter: 2013Q3

REPORT INFORMATION
  Report Type: Spontaneous
  Country: US (occurrence: US)
  Receive Date: 20130705
  Receipt Date: 20130722
  Transmission Date: 20140515
  Serious: Yes (Other)
  Sender: FDA-Public Use
  Company Number: US-AMGEN-USASP2013045777

PATIENT
  Age: 63 Year
  Sex: Female
  Weight: 64.85 kg

DRUGS (4)
  1. PROLIA [Suspect]
     Indication: OSTEOPOROSIS POSTMENOPAUSAL
     Dosage: 60 MG, QD
     Route: 058
     Dates: start: 20130625
  2. ABILIFY [Concomitant]
     Dosage: 2 MG, UNK
     Route: 048
  3. LORAZEPAM [Concomitant]
     Dosage: 1 MG, UNK
     Route: 048
  4. PROZAC [Concomitant]
     Dosage: 10 MG, UNK

REACTIONS (3)
  - Hypersensitivity [Unknown]
  - Abdominal pain [Recovered/Resolved]
  - Nausea [Recovered/Resolved]
